FAERS Safety Report 7775819-X (Version None)
Quarter: 2011Q3

REPORT INFORMATION
  Report Type: 
  Country: None (occurrence: None)
  Receive Date: 20110923
  Receipt Date: 20110915
  Transmission Date: 20111222
  Serious: Yes (Other)
  Sender: FDA-Public Use
  Company Number: PHEH2011US04371

PATIENT
  Age: 81 Year
  Sex: Female

DRUGS (8)
  1. HYOSCYAMINE [Suspect]
     Dosage: UNK UKN, UNK
  2. ASPIRIN [Concomitant]
     Dosage: UNK UKN, BID
  3. LOPERAMIDE HCL [Concomitant]
     Dosage: UNK UKN, UNK
  4. LORAZEPAM [Concomitant]
     Dosage: UNK UKN, UNK
  5. RECLAST [Suspect]
     Dosage: UNK UKN, UNK
     Route: 042
  6. OXYBUTYN [Concomitant]
     Dosage: UNK UKN, UNK
  7. LOSARTAN POTASSIUM AND HYDROCHLOROTHIAZIDE [Concomitant]
     Dosage: 100/ 20 MG
  8. CALCIUM WITH VITAMIN D [Concomitant]
     Dosage: 1200 IU, UNK

REACTIONS (3)
  - FALL [None]
  - UPPER LIMB FRACTURE [None]
  - GASTROINTESTINAL DISORDER [None]
